FAERS Safety Report 7577525-3 (Version None)
Quarter: 2011Q2

REPORT INFORMATION
  Report Type: 
  Country: None (occurrence: None)
  Receive Date: 20110628
  Receipt Date: 20110624
  Transmission Date: 20111010
  Serious: Yes (Life-Threatening)
  Sender: FDA-Public Use
  Company Number: GB-TEVA-288064ISR

PATIENT
  Age: 58 Year
  Sex: Male

DRUGS (2)
  1. TIZANIDINE HCL [Interacting]
     Indication: MUSCLE SPASTICITY
     Dosage: 8 MILLIGRAM;
     Route: 048
     Dates: start: 20070101
  2. CITALOPRAM HYDROBROMIDE [Suspect]
     Indication: DEPRESSION
     Route: 048
     Dates: start: 20110228, end: 20110228

REACTIONS (2)
  - HYPOTENSION [None]
  - DRUG INTERACTION [None]
